FAERS Safety Report 20873179 (Version 1)
Quarter: 2022Q2

REPORT INFORMATION
  Report Type: Spontaneous
  Country: US (occurrence: US)
  Receive Date: 20220525
  Receipt Date: 20220525
  Transmission Date: 20220720
  Serious: Yes (Hospitalization, Other)
  Sender: FDA-Public Use
  Company Number: US-PFIZER INC-202200711363

PATIENT
  Age: 53 Year
  Sex: Male

DRUGS (9)
  1. VANCOMYCIN HYDROCHLORIDE [Suspect]
     Active Substance: VANCOMYCIN HYDROCHLORIDE
     Indication: Abdominal infection
     Dosage: 1750 MG, EVERY 2 H
     Route: 042
  2. VANCOMYCIN HYDROCHLORIDE [Suspect]
     Active Substance: VANCOMYCIN HYDROCHLORIDE
     Dosage: 1750 MG, MORNING
     Route: 042
  3. VANCOMYCIN HYDROCHLORIDE [Suspect]
     Active Substance: VANCOMYCIN HYDROCHLORIDE
     Dosage: 500 MG, EVENING
     Route: 042
  4. VANCOMYCIN HYDROCHLORIDE [Suspect]
     Active Substance: VANCOMYCIN HYDROCHLORIDE
     Dosage: 2500 MG
     Route: 042
  5. DIGOXIN [Suspect]
     Active Substance: DIGOXIN
     Indication: Abdominal infection
     Dosage: 125 UG, DAILY
     Route: 048
  6. DIGOXIN [Suspect]
     Active Substance: DIGOXIN
     Dosage: 250 UG, ONCE OVER 5 MIN
     Route: 042
  7. DIGOXIN [Suspect]
     Active Substance: DIGOXIN
     Dosage: 62.5 UG, ONCE OVER 5 MIN
     Route: 042
  8. DIGOXIN [Suspect]
     Active Substance: DIGOXIN
     Dosage: 500 UG
     Route: 042
  9. DIGOXIN [Suspect]
     Active Substance: DIGOXIN
     Dosage: 250 UGONCE AT EACH DOSE
     Route: 042

REACTIONS (1)
  - Toxicity to various agents [Unknown]
